FAERS Safety Report 4762311-X (Version None)
Quarter: 2005Q3

REPORT INFORMATION
  Report Type: 
  Country: None (occurrence: None)
  Receive Date: 20050907
  Receipt Date: 20050830
  Transmission Date: 20060218
  Serious: Yes (Hospitalization, Disabling)
  Sender: FDA-Public Use
  Company Number: US-JNJFOC-20050806855

PATIENT
  Sex: Female
  Weight: 86.64 kg

DRUGS (13)
  1. INFLIXIMAB [Suspect]
     Route: 042
  2. INFLIXIMAB [Suspect]
     Route: 042
  3. INFLIXIMAB [Suspect]
     Indication: RHEUMATOID ARTHRITIS
     Route: 042
  4. RHEUMATREX [Concomitant]
  5. PREDNISONE [Concomitant]
  6. PREVACID [Concomitant]
  7. TAGAMENT [Concomitant]
  8. ARAVA [Concomitant]
  9. MOBIC [Concomitant]
  10. PROZAC [Concomitant]
  11. ZYRTEC [Concomitant]
  12. FOLIC ACID [Concomitant]
  13. MEDROL [Concomitant]

REACTIONS (1)
  - NEOPLASM [None]
